FAERS Safety Report 13932103 (Version 1)
Quarter: 2017Q3

REPORT INFORMATION
  Report Type: Spontaneous
  Country: FR (occurrence: FR)
  Receive Date: 20170904
  Receipt Date: 20170904
  Transmission Date: 20171127
  Serious: Yes (Death, Hospitalization, Other)
  Sender: FDA-Public Use
  Company Number: FR-BRISTOL-MYERS SQUIBB COMPANY-BMS-2017-075923

PATIENT
  Sex: Male

DRUGS (7)
  1. FINASTERIDE. [Concomitant]
     Active Substance: FINASTERIDE
     Indication: PRODUCT USED FOR UNKNOWN INDICATION
     Dosage: 5 MG, QD EVERY MORNING
     Route: 065
  2. INEXIUM                            /01479302/ [Concomitant]
     Active Substance: ESOMEPRAZOLE MAGNESIUM
     Indication: PRODUCT USED FOR UNKNOWN INDICATION
     Dosage: 40 MG, QD EVERY EVENING
     Route: 065
  3. MODOPAR [Concomitant]
     Active Substance: BENSERAZIDE HYDROCHLORIDE\LEVODOPA
     Indication: PRODUCT USED FOR UNKNOWN INDICATION
     Dosage: 1 DF, TID
     Route: 065
  4. COUMADINE [Suspect]
     Active Substance: WARFARIN SODIUM
     Indication: ISCHAEMIC STROKE
     Dosage: 1 TAB, QD EVERY EVENING
     Route: 048
     Dates: end: 20170506
  5. CIRCADIN [Concomitant]
     Active Substance: MELATONIN
     Indication: PRODUCT USED FOR UNKNOWN INDICATION
     Dosage: 2 MG, QD 2 EVERY EVENING
     Route: 065
  6. MIRTAZAPINE. [Concomitant]
     Active Substance: MIRTAZAPINE
     Indication: DEPRESSION
     Dosage: 15 MG, QD 2 EVERY EVENING
     Route: 048
     Dates: start: 20170506
  7. XANAX [Concomitant]
     Active Substance: ALPRAZOLAM
     Indication: PRODUCT USED FOR UNKNOWN INDICATION
     Dosage: 0.25 MG, QD EVERY EVENING
     Route: 065

REACTIONS (5)
  - Sepsis [Fatal]
  - International normalised ratio increased [Unknown]
  - Multiple organ dysfunction syndrome [Fatal]
  - Pneumonia [Unknown]
  - Overdose [Unknown]
